FAERS Safety Report 14353045 (Version 1)
Quarter: 2018Q1

REPORT INFORMATION
  Report Type: Spontaneous
  Country: US (occurrence: US)
  Receive Date: 20180104
  Receipt Date: 20180104
  Transmission Date: 20180509
  Serious: No
  Sender: FDA-Public Use
  Company Number: US-MYLANLABS-2017M1077302

PATIENT
  Sex: Female
  Weight: 73 kg

DRUGS (1)
  1. KETOCONAZOLE. [Suspect]
     Active Substance: KETOCONAZOLE
     Indication: FUNGAL INFECTION
     Dosage: 200 MG, UNK
     Route: 048
     Dates: start: 20171025, end: 20171126

REACTIONS (3)
  - Somnolence [Not Recovered/Not Resolved]
  - Dysgeusia [Not Recovered/Not Resolved]
  - Respiratory rate decreased [Not Recovered/Not Resolved]
